FAERS Safety Report 11198657 (Version 1)
Quarter: 2015Q2

REPORT INFORMATION
  Report Type: Spontaneous
  Country: US (occurrence: None)
  Receive Date: 20150616
  Receipt Date: 20150616
  Transmission Date: 20150821
  Serious: Yes (Hospitalization)
  Sender: FDA-Public Use
  Company Number: HA15-153-AE

PATIENT
  Age: 50 Year
  Sex: Male
  Weight: 81.19 kg

DRUGS (3)
  1. TYLENOL [Concomitant]
     Active Substance: ACETAMINOPHEN
  2. ASPIRIN. [Concomitant]
     Active Substance: ASPIRIN
  3. PHENYTOIN SODIUM ER [Suspect]
     Active Substance: PHENYTOIN SODIUM
     Indication: EPILEPSY
     Dates: start: 1975, end: 20150519

REACTIONS (3)
  - Seizure [None]
  - Anticonvulsant drug level decreased [None]
  - Fall [None]

NARRATIVE: CASE EVENT DATE: 20150416
